FAERS Safety Report 24677773 (Version 4)
Quarter: 2025Q3

REPORT INFORMATION
  Report Type: Report from Study
  Country: SA (occurrence: SA)
  Receive Date: 20241129
  Receipt Date: 20250805
  Transmission Date: 20251020
  Serious: Yes (Other)
  Sender: NOVARTIS
  Company Number: SA-002147023-NVSC2024SA228114

PATIENT
  Age: 49 Year
  Sex: Male

DRUGS (2)
  1. LEQVIO [Suspect]
     Active Substance: INCLISIRAN SODIUM
     Indication: Hypercholesterolaemia
     Route: 058
     Dates: start: 20230926
  2. LEQVIO [Suspect]
     Active Substance: INCLISIRAN SODIUM
     Route: 065
     Dates: start: 20250727

REACTIONS (16)
  - Rash [Not Recovered/Not Resolved]
  - Pruritus [Unknown]
  - Skin exfoliation [Unknown]
  - Erythema [Unknown]
  - Feeling hot [Unknown]
  - Vision blurred [Recovered/Resolved with Sequelae]
  - Prostatomegaly [Recovering/Resolving]
  - Peripheral swelling [Not Recovered/Not Resolved]
  - Ear discomfort [Recovered/Resolved]
  - Nasopharyngitis [Recovered/Resolved]
  - Toothache [Unknown]
  - Lacrimation increased [Unknown]
  - Blood glucose abnormal [Recovering/Resolving]
  - Eczema [Not Recovered/Not Resolved]
  - Inappropriate schedule of product administration [Unknown]
  - Dizziness [Unknown]

NARRATIVE: CASE EVENT DATE: 20240626
